FAERS Safety Report 10196791 (Version 1)
Quarter: 2014Q2

REPORT INFORMATION
  Report Type: Spontaneous
  Country: US (occurrence: None)
  Receive Date: 20140523
  Receipt Date: 20140523
  Transmission Date: 20141212
  Serious: Yes (Death, Life-Threatening)
  Sender: FDA-Public Use
  Company Number: None

PATIENT
  Sex: 0

DRUGS (7)
  1. ACTIVASE [Suspect]
     Indication: THROMBECTOMY
     Dosage: 50MG/250ML DRIP 1 MG/HOUR INTRAVENOUS
     Dates: start: 20140328, end: 20140331
  2. HEPARIN [Concomitant]
  3. HYDROCODONE/APAP [Concomitant]
  4. MORPHINE [Concomitant]
  5. SODIUM CHLORIDE [Concomitant]
  6. SODIUM BICARBONATE [Concomitant]
  7. ATORVASTATIN [Concomitant]

REACTIONS (6)
  - Chromaturia [None]
  - Intra-abdominal haemorrhage [None]
  - Retroperitoneal haemorrhage [None]
  - Blood creatinine increased [None]
  - Platelet count decreased [None]
  - Creatinine renal clearance decreased [None]
